FAERS Safety Report 17587305 (Version 1)
Quarter: 2020Q1

REPORT INFORMATION
  Report Type: Spontaneous
  Country: US (occurrence: US)
  Receive Date: 20200326
  Receipt Date: 20200326
  Transmission Date: 20200409
  Serious: Yes (Other)
  Sender: FDA-Public Use
  Company Number: US-VIIV HEALTHCARE LIMITED-US2020GSK044749

PATIENT
  Age: 38 Year
  Sex: Male

DRUGS (5)
  1. EMTRICITABINE/TENOFOVIR DISOPROXIL FUMARATE [Suspect]
     Active Substance: EMTRICITABINE\TENOFOVIR DISOPROXIL FUMARATE
     Indication: HIV INFECTION
     Dosage: UNK
     Dates: start: 2014
  2. DARUNAVIR [Suspect]
     Active Substance: DARUNAVIR
     Indication: HIV INFECTION
     Dosage: UNK
     Dates: start: 2014
  3. EMTRICITABINE + RILPIVIRINE + TENOFOVIR [Concomitant]
     Indication: HIV INFECTION
     Dosage: UNK
     Dates: start: 2014, end: 2014
  4. DOLUTEGRAVIR [Suspect]
     Active Substance: DOLUTEGRAVIR
     Indication: HIV INFECTION
     Dosage: UNK
     Dates: start: 2014
  5. RITONAVIR. [Suspect]
     Active Substance: RITONAVIR
     Indication: HIV INFECTION
     Dosage: UNK
     Dates: start: 2014

REACTIONS (16)
  - Goitre [Recovered/Resolved]
  - Temperature intolerance [Unknown]
  - Exophthalmos [Recovered/Resolved]
  - Endocrine ophthalmopathy [Recovered/Resolved]
  - Basedow^s disease [Recovered/Resolved]
  - Hyperthyroidism [Recovered/Resolved]
  - Insomnia [Recovered/Resolved]
  - Palpitations [Recovered/Resolved]
  - Abnormal loss of weight [Unknown]
  - Immune reconstitution inflammatory syndrome [Unknown]
  - Iodine uptake increased [Recovered/Resolved]
  - Tri-iodothyronine increased [Recovered/Resolved]
  - Blood thyroid stimulating hormone decreased [Recovered/Resolved]
  - Condition aggravated [Recovered/Resolved]
  - Thyroxine free increased [Recovered/Resolved]
  - Thyroid stimulating immunoglobulin increased [Recovered/Resolved]

NARRATIVE: CASE EVENT DATE: 2016
